FAERS Safety Report 6264607-1 (Version None)
Quarter: 2009Q3

REPORT INFORMATION
  Report Type: 
  Country: None (occurrence: None)
  Receive Date: 20090710
  Receipt Date: 20090708
  Transmission Date: 20100115
  Serious: Yes (Hospitalization)
  Sender: FDA-Public Use
  Company Number: BR-B.I. PHARMACEUTICALS,INC./RIDGEFIELD-2009-BR-00700BR

PATIENT
  Age: 8 Year
  Sex: Female

DRUGS (6)
  1. BEROTEC [Suspect]
     Indication: BRONCHOSPASM
     Route: 055
     Dates: start: 20010101
  2. ATROVENT [Suspect]
     Indication: BRONCHOSPASM
     Route: 055
     Dates: start: 20010101
  3. BUSONID AEROSSOL [Concomitant]
  4. CORTISONE [Concomitant]
     Indication: BRONCHOSPASM
     Route: 055
  5. SODIUM CHLORIDE 0.9% [Concomitant]
     Indication: BRONCHOSPASM
     Route: 055
  6. BRICANYL [Concomitant]
     Indication: BRONCHOSPASM
     Route: 042
     Dates: start: 20090707

REACTIONS (6)
  - DRUG INEFFECTIVE [None]
  - ERYTHEMA [None]
  - LIP DISCOLOURATION [None]
  - OXYGEN SATURATION DECREASED [None]
  - PUPILLARY DISORDER [None]
  - TREMOR [None]
